FAERS Safety Report 4403878-0 (Version None)
Quarter: 2004Q3

REPORT INFORMATION
  Report Type: 
  Country: None (occurrence: None)
  Receive Date: 20040719
  Receipt Date: 20040630
  Transmission Date: 20050211
  Serious: Yes (Other)
  Sender: FDA-Public Use
  Company Number: B0337271A

PATIENT
  Age: 47 Year
  Sex: Female

DRUGS (8)
  1. ALKERAN [Suspect]
     Dosage: 140 MG/M2 / PER DAY / INTRAVENOUS
     Route: 042
  2. ETOPOSIDE [Suspect]
     Dosage: 200 MG/M2 TWICE PER DAY / INTRAVENOUS
     Route: 042
  3. CARMUSTINE [Suspect]
     Dosage: 300 MG/M2 / PER DAY / INTRAVENOUS
     Route: 042
  4. CYTARABINE [Suspect]
     Dosage: 200 MG/M2 / TWICE PER DAY / INTRAVENOUS
     Route: 042
  5. FLUDARABINE PHOSPHATE [Concomitant]
  6. RADIOTHERAPY [Concomitant]
  7. CYCLOSPORINE [Concomitant]
  8. ANTIFUNGAL [Concomitant]

REACTIONS (3)
  - GRAFT VERSUS HOST DISEASE [None]
  - NEUTROPENIA [None]
  - STEM CELL TRANSPLANT [None]
